FAERS Safety Report 17073632 (Version 6)
Quarter: 2020Q1

REPORT INFORMATION
  Report Type: Spontaneous
  Country: US (occurrence: US)
  Receive Date: 20191126
  Receipt Date: 20200123
  Transmission Date: 20200409
  Serious: Yes (Hospitalization)
  Sender: FDA-Public Use
  Company Number: US-ACTELION-A-US2019-198647

PATIENT
  Age: 78 Year
  Sex: Female
  Weight: 104.31 kg

DRUGS (27)
  1. ASPIRIN. [Concomitant]
     Active Substance: ASPIRIN
  2. OXYCODONE AND ACETAMINOPHEN [Concomitant]
     Active Substance: ACETAMINOPHEN\OXYCODONE HYDROCHLORIDE
  3. DOCUSATE SOD [Concomitant]
  4. KCL [Concomitant]
     Active Substance: POTASSIUM CHLORIDE
  5. METOPROLOL. [Concomitant]
     Active Substance: METOPROLOL
  6. PROMETHAZINE [Concomitant]
     Active Substance: PROMETHAZINE HYDROCHLORIDE
  7. SENNOSIDE [Concomitant]
     Active Substance: SENNOSIDES
  8. OMEGA 3 [Concomitant]
     Active Substance: OMEGA-3 FATTY ACIDS
  9. MAGNESIUM [Concomitant]
     Active Substance: MAGNESIUM
  10. FUROSEMIDE. [Concomitant]
     Active Substance: FUROSEMIDE
  11. ATARAX [Concomitant]
     Active Substance: HYDROXYZINE HYDROCHLORIDE
  12. OPSUMIT [Suspect]
     Active Substance: MACITENTAN
     Indication: PULMONARY ARTERIAL HYPERTENSION
     Dosage: 10 MG
     Route: 048
     Dates: start: 20191112
  13. TIZANIDINE. [Concomitant]
     Active Substance: TIZANIDINE
  14. VITAMIN B12 [Concomitant]
     Active Substance: CYANOCOBALAMIN
  15. VITAMIN A [Concomitant]
     Active Substance: VITAMIN A
  16. APPLE CIDER VINEGAR PLUS BROMELAIN AN. [Concomitant]
  17. DILTIAZEM. [Concomitant]
     Active Substance: DILTIAZEM
  18. GABAPENTIN. [Concomitant]
     Active Substance: GABAPENTIN
  19. WAL DRYL [Concomitant]
  20. LEVOTHYROXINE. [Concomitant]
     Active Substance: LEVOTHYROXINE
  21. HYDROXYZINE HCL [Concomitant]
     Active Substance: HYDROXYZINE HYDROCHLORIDE
  22. RANITIDINE. [Concomitant]
     Active Substance: RANITIDINE
  23. ELIQUIS [Suspect]
     Active Substance: APIXABAN
     Indication: PRODUCT USED FOR UNKNOWN INDICATION
     Route: 048
  24. VITAMIN D3 [Concomitant]
     Active Substance: CHOLECALCIFEROL
  25. TRAZODONE HYDROCHLORIDE. [Concomitant]
     Active Substance: TRAZODONE HYDROCHLORIDE
  26. ROSUVASTATIN. [Concomitant]
     Active Substance: ROSUVASTATIN
  27. DULOXETINE. [Concomitant]
     Active Substance: DULOXETINE

REACTIONS (15)
  - Fluid retention [Unknown]
  - Nervousness [Unknown]
  - Unevaluable event [Recovering/Resolving]
  - Peripheral swelling [Unknown]
  - Myalgia [Unknown]
  - Somnolence [Not Recovered/Not Resolved]
  - Muscle spasms [Not Recovered/Not Resolved]
  - Polyuria [Unknown]
  - Anxiety [Unknown]
  - Nasal congestion [Unknown]
  - Weight increased [Not Recovered/Not Resolved]
  - Adverse event [Not Recovered/Not Resolved]
  - Contusion [Unknown]
  - Malaise [Unknown]
  - Rash [Unknown]

NARRATIVE: CASE EVENT DATE: 201911
